FAERS Safety Report 21840054 (Version 1)
Quarter: 2023Q1

REPORT INFORMATION
  Report Type: Report from Study
  Country: US (occurrence: US)
  Receive Date: 20230110
  Receipt Date: 20230110
  Transmission Date: 20230418
  Serious: No
  Sender: FDA-Public Use
  Company Number: US-ABBVIE-4262831

PATIENT
  Sex: Female

DRUGS (1)
  1. VENCLEXTA [Suspect]
     Active Substance: VENETOCLAX
     Indication: Acute lymphocytic leukaemia
     Dosage: TWO TABLETS (WITH 100 MG TOTAL DOSE 220MG) WITH FOOD AND A FULL GLASS OF WATER
     Route: 048

REACTIONS (2)
  - Infection [Unknown]
  - White blood cell count decreased [Unknown]
